FAERS Safety Report 16832849 (Version 1)
Quarter: 2019Q3

REPORT INFORMATION
  Report Type: Spontaneous
  Country: US (occurrence: US)
  Receive Date: 20190920
  Receipt Date: 20190920
  Transmission Date: 20191005
  Serious: Yes (Death)
  Sender: FDA-Public Use
  Company Number: US-HORIZON-ACT-0250-2019

PATIENT
  Age: 54 Year
  Sex: Male

DRUGS (1)
  1. ACTIMMUNE [Suspect]
     Active Substance: INTERFERON GAMMA-1B
     Indication: MYCOBACTERIUM AVIUM COMPLEX INFECTION
     Dosage: 95 MCG 3 TIMES PER WEEK
     Dates: end: 20190727

REACTIONS (4)
  - Drug ineffective for unapproved indication [Fatal]
  - Off label use [Unknown]
  - Malaise [Fatal]
  - Unevaluable event [Fatal]
